FAERS Safety Report 6017469-1 (Version None)
Quarter: 2008Q4

REPORT INFORMATION
  Report Type: 
  Country: None (occurrence: None)
  Receive Date: 20081219
  Receipt Date: 20081209
  Transmission Date: 20090506
  Serious: Yes (Death, Congenital Anomaly)
  Sender: FDA-Public Use
  Company Number: B0550613A

PATIENT
  Sex: 0

DRUGS (2)
  1. PAROXETINE HCL [Suspect]
     Dosage: TRANSPLACENTARY
     Route: 064
  2. CLONAZEPAM [Concomitant]

REACTIONS (5)
  - ATRIAL SEPTAL DEFECT [None]
  - HYPOPLASTIC LEFT HEART SYNDROME [None]
  - MATERNAL DRUGS AFFECTING FOETUS [None]
  - MITRAL VALVE DISEASE [None]
  - VENTRICULAR SEPTAL DEFECT [None]
